FAERS Safety Report 8970881 (Version 2)
Quarter: 2012Q4

REPORT INFORMATION
  Report Type: 
  Country: CL (occurrence: CL)
  Receive Date: 20121217
  Receipt Date: 20121228
  Transmission Date: 20130627
  Serious: Yes (Other)
  Sender: FDA-Public Use
  Company Number: CL-TEVA-375402ISR

PATIENT
  Age: 67 Year
  Sex: Male

DRUGS (1)
  1. DICLOFENAC [Suspect]
     Route: 065

REACTIONS (1)
  - Linear IgA disease [Recovered/Resolved]
